FAERS Safety Report 6381055-4 (Version None)
Quarter: 2009Q3

REPORT INFORMATION
  Report Type: 
  Country: None (occurrence: None)
  Receive Date: 20090925
  Receipt Date: 20090925
  Transmission Date: 20100115
  Serious: Yes (Hospitalization)
  Sender: FDA-Public Use
  Company Number: None

PATIENT
  Age: 70 Year
  Sex: Male
  Weight: 90.7194 kg

DRUGS (1)
  1. ALLI [Suspect]
     Indication: HAEMATOCHEZIA
     Dosage: 60 PILLS 2 PILLS A DAY ORAL
     Route: 048
     Dates: start: 20090601, end: 20090611

REACTIONS (2)
  - GASTROINTESTINAL DISORDER [None]
  - HAEMATOCHEZIA [None]
